FAERS Safety Report 9647564 (Version 1)
Quarter: 2013Q4

REPORT INFORMATION
  Report Type: Spontaneous
  Country: US (occurrence: US)
  Receive Date: 20131028
  Receipt Date: 20131028
  Transmission Date: 20140711
  Serious: No
  Sender: FDA-Public Use
  Company Number: US-B.I. PHARMACEUTICALS,INC./RIDGEFIELD-2013-BI-32877BP

PATIENT
  Sex: Female
  Weight: 44 kg

DRUGS (9)
  1. SPIRIVA [Suspect]
     Indication: CHRONIC OBSTRUCTIVE PULMONARY DISEASE
     Dosage: 18 MCG
     Route: 048
     Dates: start: 2010, end: 20131001
  2. FUROSEMIDE [Concomitant]
     Indication: PERICARDIAL EFFUSION
     Dosage: 20 MG
     Route: 048
     Dates: start: 201301
  3. FUROSEMIDE [Concomitant]
     Indication: PLEURAL EFFUSION
  4. DIGOXIN [Concomitant]
     Indication: CONDUCTION DISORDER
     Dosage: 0.125 MG
     Route: 048
     Dates: start: 2003
  5. VERAPAMIL [Concomitant]
     Indication: HYPERTENSION
     Dosage: 240 MG
     Route: 048
     Dates: start: 2003
  6. PLAQUENIL [Concomitant]
     Indication: AUTOIMMUNE DISORDER
     Dosage: 400 MG
     Route: 048
     Dates: start: 2003
  7. PROAIR [Concomitant]
     Indication: CHRONIC OBSTRUCTIVE PULMONARY DISEASE
     Route: 055
     Dates: start: 2003
  8. LIPITOR [Concomitant]
     Indication: BLOOD CHOLESTEROL INCREASED
     Dosage: 20 MG
     Route: 048
     Dates: start: 1997
  9. METOPROLOL [Concomitant]
     Indication: PERICARDIAL EFFUSION
     Dosage: 50 MG
     Route: 048
     Dates: start: 201301

REACTIONS (5)
  - Dry mouth [Recovered/Resolved]
  - Stomatitis [Recovered/Resolved]
  - Tongue discolouration [Recovered/Resolved]
  - Ageusia [Recovered/Resolved]
  - Decreased appetite [Recovered/Resolved]
